FAERS Safety Report 10553659 (Version 1)
Quarter: 2014Q4

REPORT INFORMATION
  Report Type: Spontaneous
  Country: US (occurrence: None)
  Receive Date: 20141029
  Receipt Date: 20141029
  Transmission Date: 20150529
  Serious: No
  Sender: FDA-Public Use
  Company Number: None

PATIENT
  Age: 70 Year
  Sex: Male
  Weight: 78.6 kg

DRUGS (5)
  1. HYDROCODONE-ACETAMINOPHEN (HYCET) [Concomitant]
  2. WARFARIN SODIUM. [Concomitant]
     Active Substance: WARFARIN SODIUM
  3. REVLIMID [Suspect]
     Active Substance: LENALIDOMIDE
     Indication: PLASMA CELL MYELOMA
     Dosage: 10MG, X21/28D, ORALLY
     Route: 048
     Dates: start: 201007
  4. ATENOLOL (TENORMIN) [Concomitant]
  5. LEVOTHYROXINE (LEVOTHROID/SYNTHROID) [Concomitant]

REACTIONS (2)
  - Thrombocytopenia [None]
  - Neutropenia [None]

NARRATIVE: CASE EVENT DATE: 20140923
